FAERS Safety Report 25636221 (Version 1)
Quarter: 2025Q3

REPORT INFORMATION
  Report Type: Spontaneous
  Country: JP (occurrence: JP)
  Receive Date: 20250803
  Receipt Date: 20250803
  Transmission Date: 20251020
  Serious: Yes (Hospitalization, Other)
  Sender: MERCK SHARP & DOHME LLC
  Company Number: JP-009507513-2315087

PATIENT
  Age: 70 Year
  Sex: Male

DRUGS (1)
  1. KEYTRUDA [Suspect]
     Active Substance: PEMBROLIZUMAB
     Indication: Lung adenocarcinoma
     Route: 065

REACTIONS (10)
  - Movement disorder [Unknown]
  - Feeding disorder [Unknown]
  - Restlessness [Unknown]
  - Adrenal insufficiency [Unknown]
  - Cognitive disorder [Unknown]
  - Hypophysitis [Unknown]
  - Somnolence [Unknown]
  - Disorientation [Unknown]
  - Malaise [Unknown]
  - Decreased appetite [Unknown]
